FAERS Safety Report 7010909-0 (Version None)
Quarter: 2010Q3

REPORT INFORMATION
  Report Type: 
  Country: None (occurrence: None)
  Receive Date: 20100923
  Receipt Date: 20100923
  Transmission Date: 20110219
  Serious: Yes (Life-Threatening)
  Sender: FDA-Public Use
  Company Number: None

PATIENT
  Age: 74 Year
  Sex: Male
  Weight: 68.0396 kg

DRUGS (1)
  1. NAPROXEN [Suspect]
     Indication: PERIARTHRITIS
     Dosage: ONE(1) TABLET DAILY 047 SWALLOWED DAILY
     Route: 048
     Dates: start: 20100101, end: 20100510

REACTIONS (6)
  - ABDOMINAL PAIN LOWER [None]
  - ABDOMINAL PAIN UPPER [None]
  - CHEST PAIN [None]
  - DRUG EFFECT DECREASED [None]
  - DUODENAL PERFORATION [None]
  - FALL [None]
